FAERS Safety Report 20768861 (Version 1)
Quarter: 2022Q2

REPORT INFORMATION
  Report Type: Other
  Country: AU (occurrence: None)
  Receive Date: 20220429
  Receipt Date: 20220429
  Transmission Date: 20220721
  Serious: Yes (Other)
  Sender: FDA-Public Use
  Company Number: AU-ROCHE-3084476

PATIENT
  Age: 67 Year
  Sex: Male

DRUGS (7)
  1. TOCILIZUMAB [Suspect]
     Active Substance: TOCILIZUMAB
     Indication: VEXAS syndrome
     Route: 065
  2. RITUXIMAB [Suspect]
     Active Substance: RITUXIMAB
     Indication: Chondritis
     Route: 065
  3. RITUXIMAB [Suspect]
     Active Substance: RITUXIMAB
     Indication: Pericarditis
  4. RITUXIMAB [Suspect]
     Active Substance: RITUXIMAB
     Indication: Rash
  5. METHOTREXATE [Concomitant]
     Active Substance: METHOTREXATE
  6. ADALIMUMAB [Concomitant]
     Active Substance: ADALIMUMAB
  7. ETANERCEPT [Concomitant]
     Active Substance: ETANERCEPT

REACTIONS (2)
  - Neutropenia [Unknown]
  - Drug ineffective [Unknown]
